FAERS Safety Report 9049030 (Version 1)
Quarter: 2013Q1

REPORT INFORMATION
  Report Type: Spontaneous
  Country: GR (occurrence: None)
  Receive Date: 20130117
  Receipt Date: 20130117
  Transmission Date: 20140127
  Serious: Yes (Hospitalization)
  Sender: FDA-Public Use
  Company Number: GR-010566

PATIENT
  Age: 66 Year
  Sex: Male
  Weight: 105 kg

DRUGS (5)
  1. DEGARELIX (FIRMAGON) 240 MG, 80 MG) [Suspect]
     Indication: PROSTATE CANCER
     Route: 058
     Dates: start: 20120412, end: 20120412
  2. SALOSPIR [Concomitant]
  3. IGROTON LOPRESON [Concomitant]
  4. CRESTOR [Concomitant]
  5. OMEPRAZOLE [Concomitant]

REACTIONS (2)
  - Laryngeal oedema [None]
  - Drug hypersensitivity [None]
